FAERS Safety Report 19272015 (Version 1)
Quarter: 2021Q2

REPORT INFORMATION
  Report Type: Spontaneous
  Country: US (occurrence: US)
  Receive Date: 20210519
  Receipt Date: 20210519
  Transmission Date: 20210717
  Serious: No
  Sender: FDA-Public Use
  Company Number: US-ELI_LILLY_AND_COMPANY-US202105006834

PATIENT
  Sex: Female

DRUGS (2)
  1. TALTZ [Suspect]
     Active Substance: IXEKIZUMAB
     Indication: PSORIASIS
     Dosage: 160 MG, SINGLE(LOADING DOSE)
     Route: 065
     Dates: start: 20210129
  2. TALTZ [Suspect]
     Active Substance: IXEKIZUMAB
     Dosage: 80 MG, OTHER(EVERY 2 WEEKS)
     Route: 065
     Dates: end: 202104

REACTIONS (7)
  - Eye pruritus [Recovering/Resolving]
  - Periorbital swelling [Recovering/Resolving]
  - Fatigue [Not Recovered/Not Resolved]
  - Ocular discomfort [Recovering/Resolving]
  - Headache [Not Recovered/Not Resolved]
  - Lacrimation increased [Recovering/Resolving]
  - Cough [Not Recovered/Not Resolved]
